FAERS Safety Report 25074980 (Version 1)
Quarter: 2025Q1

REPORT INFORMATION
  Report Type: Spontaneous
  Country: PE (occurrence: None)
  Receive Date: 20250312
  Receipt Date: 20250312
  Transmission Date: 20250408
  Serious: Yes (Other)
  Sender: FDA-CTU
  Company Number: None

PATIENT
  Age: 43 Year
  Weight: 66 kg

DRUGS (5)
  1. AZITHROMYCIN ANHYDROUS [Suspect]
     Active Substance: AZITHROMYCIN ANHYDROUS
     Dates: start: 20250302, end: 20250309
  2. Ampoule of Dexamethasone with Diclofenac [Concomitant]
  3. IBUPROFEN [Concomitant]
     Active Substance: IBUPROFEN
  4. Amoxicillin plus Clavulanic acid 250+125 [Concomitant]
  5. sachet of Acetylcysteine [Concomitant]

REACTIONS (5)
  - Chest pain [None]
  - Dyspepsia [None]
  - Back pain [None]
  - Dyspnoea [None]
  - Drug ineffective [None]

NARRATIVE: CASE EVENT DATE: 20250309
